FAERS Safety Report 5095120-5 (Version None)
Quarter: 2006Q3

REPORT INFORMATION
  Report Type: 
  Country: None (occurrence: None)
  Receive Date: 20060901
  Receipt Date: 20060828
  Transmission Date: 20061208
  Serious: Yes (Hospitalization)
  Sender: FDA-Public Use
  Company Number: JP-JNJFOC-20060700981

PATIENT
  Sex: Female
  Weight: 59 kg

DRUGS (11)
  1. INFLIXIMAB, RECOMBINANT [Suspect]
     Route: 042
  2. INFLIXIMAB, RECOMBINANT [Suspect]
     Route: 042
  3. INFLIXIMAB, RECOMBINANT [Suspect]
     Indication: RHEUMATOID ARTHRITIS
     Route: 042
  4. RHEUMATREX [Concomitant]
     Indication: RHEUMATOID ARTHRITIS
     Route: 048
  5. FOLIAMIN [Concomitant]
     Indication: ADVERSE DRUG REACTION
     Dosage: START DATE BEFORE 09-FEB-06
     Route: 048
  6. HYPEN [Concomitant]
     Indication: RHEUMATOID ARTHRITIS
     Dosage: START DATE BEFORE 09-FEB-06
     Route: 048
  7. SELBEX [Concomitant]
     Indication: GASTROINTESTINAL DISORDER THERAPY
     Dosage: START DATE BEFORE 09-FEB-06
     Route: 048
  8. AZULFIDINE EN-TABS [Concomitant]
     Indication: RHEUMATOID ARTHRITIS
     Dosage: START DATE BEFORE 08-FEB-06
     Route: 048
  9. PREDONINE [Concomitant]
     Indication: RHEUMATOID ARTHRITIS
     Dosage: START DATE BEFORE 09-FEB-06
     Route: 048
  10. BONALON [Concomitant]
     Indication: OSTEOPOROSIS
     Dosage: START DATE BEFORE 09-FEB-06
     Route: 048
  11. ISCOTIN [Concomitant]
     Indication: ANTIBIOTIC PROPHYLAXIS
     Route: 048

REACTIONS (1)
  - THYROID CANCER [None]
